FAERS Safety Report 5188375-X (Version None)
Quarter: 2006Q4

REPORT INFORMATION
  Report Type: 
  Country: None (occurrence: None)
  Receive Date: 20061221
  Receipt Date: 20061110
  Transmission Date: 20070319
  Serious: Yes (Other)
  Sender: FDA-Public Use
  Company Number: DE-SHR-DE-2006-035166

PATIENT
  Sex: Female

DRUGS (1)
  1. MIRENA [Suspect]
     Dosage: 20 A?G/DAY, CONT
     Route: 015
     Dates: start: 20060701

REACTIONS (1)
  - BREAST CANCER FEMALE [None]
